FAERS Safety Report 7276769-8 (Version None)
Quarter: 2011Q1

REPORT INFORMATION
  Report Type: 
  Country: None (occurrence: None)
  Receive Date: 20110206
  Receipt Date: 20110131
  Transmission Date: 20110831
  Serious: Yes (Life-Threatening, Hospitalization)
  Sender: FDA-Public Use
  Company Number: DE-BRISTOL-MYERS SQUIBB COMPANY-15447220

PATIENT
  Age: 63 Year
  Sex: Male
  Weight: 82 kg

DRUGS (1)
  1. ORENCIA [Suspect]
     Indication: RHEUMATOID ARTHRITIS
     Dosage: 3 BOTTLES ALSO 250MG
     Route: 042
     Dates: start: 20101207

REACTIONS (5)
  - SHOCK [None]
  - ATRIAL FIBRILLATION [None]
  - TACHYARRHYTHMIA [None]
  - HYPOTENSION [None]
  - HYPERTENSION [None]
